FAERS Safety Report 25224640 (Version 1)
Quarter: 2025Q2

REPORT INFORMATION
  Report Type: Spontaneous
  Country: US (occurrence: US)
  Receive Date: 20250422
  Receipt Date: 20250422
  Transmission Date: 20250716
  Serious: Yes (Other)
  Sender: AMERICAN REGENT
  Company Number: US-AMERICAN REGENT INC-2025001581

PATIENT
  Sex: Female

DRUGS (2)
  1. VENOFER [Suspect]
     Active Substance: IRON SUCROSE
     Indication: Iron deficiency anaemia
     Route: 042
     Dates: start: 202410
  2. VENOFER [Suspect]
     Active Substance: IRON SUCROSE
     Indication: Haemorrhage

REACTIONS (2)
  - Heavy menstrual bleeding [Not Recovered/Not Resolved]
  - Menstruation irregular [Not Recovered/Not Resolved]
